FAERS Safety Report 10523536 (Version 3)
Quarter: 2014Q4

REPORT INFORMATION
  Report Type: Spontaneous
  Country: US (occurrence: US)
  Receive Date: 20141017
  Receipt Date: 20141202
  Transmission Date: 20150528
  Serious: Yes (Other)
  Sender: FDA-Public Use
  Company Number: US-BEH-2014045559

PATIENT
  Age: 65 Year
  Sex: Female

DRUGS (17)
  1. HIZENTRA [Suspect]
     Active Substance: HUMAN IMMUNOGLOBULIN G
     Indication: IMMUNODEFICIENCY COMMON VARIABLE
     Dosage: LAST DOSE; 5 GM WEEKLY
     Route: 058
     Dates: start: 20140924, end: 20140924
  2. HIZENTRA [Suspect]
     Active Substance: HUMAN IMMUNOGLOBULIN G
     Dosage: 5 GM WEEKLY
     Route: 058
  3. NORTRIPTYLINE [Suspect]
     Active Substance: NORTRIPTYLINE
  4. ALL OTHER THERAPEUTIC PRODUCTS [Concomitant]
     Active Substance: UNSPECIFIED INGREDIENT
  5. HIZENTRA [Suspect]
     Active Substance: HUMAN IMMUNOGLOBULIN G
     Indication: HYPOGAMMAGLOBULINAEMIA
     Dosage: FIRST DOSE
     Dates: start: 20140819
  6. PROTONIX [Suspect]
     Active Substance: PANTOPRAZOLE SODIUM
  7. CARAFATE [Concomitant]
     Active Substance: SUCRALFATE
  8. TOPROL XL [Concomitant]
     Active Substance: METOPROLOL SUCCINATE
  9. VITAMIN D3 [Concomitant]
     Active Substance: CHOLECALCIFEROL
  10. LYRICA [Concomitant]
     Active Substance: PREGABALIN
  11. HIZENTRA [Suspect]
     Active Substance: HUMAN IMMUNOGLOBULIN G
     Dosage: 4 GM/ 20 ML; 5 GM WEEKLY
     Route: 058
  12. ALL OTHER THERAPEUTIC PRODUCTS [Concomitant]
     Active Substance: UNSPECIFIED INGREDIENT
     Dosage: 0.25%
     Route: 047
  13. REFRESH TEARS [Concomitant]
     Active Substance: CARBOXYMETHYLCELLULOSE SODIUM
  14. BENZACLIN [Concomitant]
     Active Substance: BENZOYL PEROXIDE\CLINDAMYCIN PHOSPHATE
     Dosage: 1-5% EXTERNAL GEL
  15. EVISTA [Concomitant]
     Active Substance: RALOXIFENE HYDROCHLORIDE
  16. METROGEL [Concomitant]
     Active Substance: METRONIDAZOLE
     Dosage: 1% EXTERNAL GEL
  17. OMEGA 3 [Concomitant]
     Active Substance: OMEGA-3 FATTY ACIDS

REACTIONS (2)
  - Deafness [Recovering/Resolving]
  - Tinnitus [Recovering/Resolving]

NARRATIVE: CASE EVENT DATE: 201409
